FAERS Safety Report 8784810 (Version 1)
Quarter: 2012Q4

REPORT INFORMATION
  Report Type: 
  Country: US (occurrence: US)
  Receive Date: 20120914
  Receipt Date: 20120914
  Transmission Date: 20130627
  Serious: No
  Sender: FDA-Public Use
  Company Number: US-B.I. PHARMACEUTICALS,INC./RIDGEFIELD-2012-BP-21116BP

PATIENT
  Age: 67 Year
  Sex: Male
  Weight: 107 kg

DRUGS (3)
  1. SPIRIVA [Suspect]
     Indication: DYSPNOEA
     Dosage: 18 mcg
     Route: 055
     Dates: start: 201205
  2. INSULIN [Concomitant]
     Indication: DIABETES MELLITUS
     Route: 058
  3. UNSPECIFIED MEDICATION [Concomitant]
     Indication: ANTICOAGULANT THERAPY

REACTIONS (1)
  - Incorrect route of drug administration [Recovered/Resolved]
